FAERS Safety Report 4477990-4 (Version None)
Quarter: 2004Q3

REPORT INFORMATION
  Report Type: 
  Country: None (occurrence: None)
  Receive Date: 20040923
  Receipt Date: 20040706
  Transmission Date: 20050211
  Serious: No
  Sender: FDA-Public Use
  Company Number: USA040670179

PATIENT
  Age: 72 Year
  Sex: Female
  Weight: 41 kg

DRUGS (7)
  1. FORTEO [Suspect]
     Indication: OSTEOPOROSIS
     Dates: start: 20040524
  2. LIPITOR [Concomitant]
  3. NORVASC [Concomitant]
  4. IMDUR [Concomitant]
  5. VIOXX [Concomitant]
  6. FOLIC ACID [Concomitant]
  7. CALCIUM [Concomitant]

REACTIONS (1)
  - FATIGUE [None]
